FAERS Safety Report 9022041 (Version 3)
Quarter: 2013Q1

REPORT INFORMATION
  Report Type: Spontaneous
  Country: IT (occurrence: IT)
  Receive Date: 20130118
  Receipt Date: 20130211
  Transmission Date: 20140127
  Serious: Yes (Death, Hospitalization)
  Sender: FDA-Public Use
  Company Number: IT-SANOFI-AVENTIS-2013SA002582

PATIENT
  Age: 77 Year
  Sex: Male

DRUGS (3)
  1. JEVTANA [Suspect]
     Indication: PROSTATE CANCER
     Dosage: DOSE FOR 2 CYCLES
     Route: 041
     Dates: start: 20121019
  2. JEVTANA [Suspect]
     Indication: PROSTATE CANCER
     Route: 041
     Dates: start: 20121130
  3. ENANTONE [Concomitant]
     Dosage: STRENGTH: 3.75 MG/2 ML
     Route: 030

REACTIONS (4)
  - Gastric haemorrhage [Fatal]
  - Melaena [Fatal]
  - Thrombocytopenia [Fatal]
  - Neutropenia [Recovered/Resolved]
